FAERS Safety Report 9927247 (Version 2)
Quarter: 2014Q1

REPORT INFORMATION
  Report Type: Spontaneous
  Country: US (occurrence: US)
  Receive Date: 20140226
  Receipt Date: 20140226
  Transmission Date: 20141002
  Serious: No
  Sender: FDA-Public Use
  Company Number: US-AMGEN-USASP2013081160

PATIENT
  Age: 40 Year
  Sex: Male
  Weight: 133.7 kg

DRUGS (5)
  1. ENBREL [Suspect]
     Indication: PRODUCT USED FOR UNKNOWN INDICATION
     Dosage: 50 MG, QWK
     Route: 058
  2. METHOTREXATE [Concomitant]
     Dosage: 2.5 MG, UNK
  3. LISINOPRIL [Concomitant]
     Dosage: 2.5 MG, UNK
  4. AMLODIPINE [Concomitant]
     Dosage: 10 MG, UNK
  5. HYDROCHLOROTH [Concomitant]
     Dosage: 25 MG, UNK

REACTIONS (5)
  - Arthralgia [Unknown]
  - Rheumatoid arthritis [Unknown]
  - Joint lock [Unknown]
  - Pain in jaw [Unknown]
  - Dyspnoea [Unknown]
